FAERS Safety Report 4567926-X (Version None)
Quarter: 2005Q1

REPORT INFORMATION
  Report Type: 
  Country: None (occurrence: None)
  Receive Date: 20050202
  Receipt Date: 20040217
  Transmission Date: 20050727
  Serious: Yes (Other)
  Sender: FDA-Public Use
  Company Number: USGLA-S-20040082

PATIENT

DRUGS (1)
  1. NAVELBINE [Suspect]
     Route: 042

REACTIONS (2)
  - BONE MARROW DEPRESSION [None]
  - NEUTROPENIA [None]
